FAERS Safety Report 15868551 (Version 1)
Quarter: 2019Q1

REPORT INFORMATION
  Report Type: Spontaneous
  Country: BR (occurrence: BR)
  Receive Date: 20190125
  Receipt Date: 20190125
  Transmission Date: 20190417
  Serious: Yes (Other)
  Sender: FDA-Public Use
  Company Number: BR-BIOMARINAP-BR-2019-121645

PATIENT
  Age: 17 Year
  Sex: Male
  Weight: 45 kg

DRUGS (2)
  1. ALDURAZYME [Suspect]
     Active Substance: LARONIDASE
     Indication: MUCOPOLYSACCHARIDOSIS I
     Dosage: 9 DOSAGE FORM, QW
     Route: 041
     Dates: start: 20070101
  2. DESLORATADINE. [Suspect]
     Active Substance: DESLORATADINE
     Indication: ANTIALLERGIC THERAPY
     Route: 065

REACTIONS (10)
  - Hernia [Unknown]
  - Irritability [Unknown]
  - Gallbladder disorder [Unknown]
  - Limb deformity [Unknown]
  - Fatigue [Unknown]
  - Pain [Unknown]
  - Aggression [Unknown]
  - Blood pressure decreased [Unknown]
  - Hyperaesthesia [Unknown]
  - Sleep disorder [Unknown]

NARRATIVE: CASE EVENT DATE: 20190110
